FAERS Safety Report 17158542 (Version 1)
Quarter: 2019Q4

REPORT INFORMATION
  Report Type: Spontaneous
  Country: US (occurrence: US)
  Receive Date: 20191216
  Receipt Date: 20191216
  Transmission Date: 20200122
  Serious: No
  Sender: FDA-Public Use
  Company Number: US-PFIZER INC-2019538304

PATIENT
  Age: 72 Year
  Sex: Female
  Weight: 45.36 kg

DRUGS (1)
  1. PREGABALIN. [Suspect]
     Active Substance: PREGABALIN
     Indication: SMALL FIBRE NEUROPATHY
     Dosage: 200 MG, 1X/DAY (100MG 2 CAPSULE BY MOUTH AT BEDTIME)
     Route: 048
     Dates: start: 201911, end: 201911

REACTIONS (1)
  - Drug intolerance [Recovered/Resolved]

NARRATIVE: CASE EVENT DATE: 201911
